FAERS Safety Report 4984422-6 (Version None)
Quarter: 2006Q2

REPORT INFORMATION
  Report Type: 
  Country: None (occurrence: None)
  Receive Date: 20060421
  Receipt Date: 20060415
  Transmission Date: 20061013
  Serious: Yes (Disabling, Other)
  Sender: FDA-Public Use
  Company Number: 2006034378

PATIENT
  Sex: Female

DRUGS (7)
  1. NEURONTIN [Suspect]
     Indication: DIABETIC NEUROPATHY
     Dosage: 600 MG (300 MG, 2 IN 1 D)
     Dates: start: 20030101
  2. VISTARIL [Suspect]
     Indication: DIABETIC NEUROPATHY
     Dosage: DAILY
     Dates: start: 20030101
  3. AVANDAMET [Concomitant]
  4. NEXIUM [Concomitant]
  5. LISINOPRIL [Concomitant]
  6. WELLBUTRIN XL [Concomitant]
  7. ELAVIL [Concomitant]

REACTIONS (3)
  - CONDITION AGGRAVATED [None]
  - DIABETIC NEUROPATHY [None]
  - ECONOMIC PROBLEM [None]
